FAERS Safety Report 5358027-1 (Version None)
Quarter: 2007Q2

REPORT INFORMATION
  Report Type: 
  Country: None (occurrence: None)
  Receive Date: 20070530
  Receipt Date: 20061213
  Transmission Date: 20071010
  Serious: Yes (Hospitalization)
  Sender: FDA-Public Use
  Company Number: US200606001070

PATIENT
  Age: 42 Year
  Sex: Female
  Weight: 54.4 kg

DRUGS (5)
  1. ZYPREXA [Suspect]
     Dosage: SEE IMAGE
     Dates: end: 20050101
  2. ZYPREXA [Suspect]
     Dosage: SEE IMAGE
     Dates: start: 20000101
  3. DIVALPROEX SODIUM [Concomitant]
  4. MIRTAZAPINE [Concomitant]
  5. PAROXETINE [Concomitant]

REACTIONS (4)
  - BLOOD CHOLESTEROL ABNORMAL [None]
  - HYPOGLYCAEMIA [None]
  - METABOLIC DISORDER [None]
  - MYOCARDIAL ISCHAEMIA [None]
